FAERS Safety Report 7024178-9 (Version None)
Quarter: 2010Q4

REPORT INFORMATION
  Report Type: 
  Country: None (occurrence: None)
  Receive Date: 20101001
  Receipt Date: 20100922
  Transmission Date: 20110411
  Serious: Yes (Other)
  Sender: FDA-Public Use
  Company Number: CA-ASTRAZENECA-2010SE44803

PATIENT
  Sex: Male

DRUGS (1)
  1. ATACAND [Suspect]
     Indication: HYPERTENSION
     Route: 048
     Dates: start: 20080801, end: 20090101

REACTIONS (4)
  - FALL [None]
  - LOWER LIMB FRACTURE [None]
  - MUSCULAR WEAKNESS [None]
  - MYALGIA [None]
